FAERS Safety Report 11125526 (Version 3)
Quarter: 2020Q1

REPORT INFORMATION
  Report Type: Spontaneous
  Country: US (occurrence: US)
  Receive Date: 20150520
  Receipt Date: 20200224
  Transmission Date: 20200409
  Serious: No
  Sender: FDA-Public Use
  Company Number: US-PFIZER INC-2015165970

PATIENT
  Age: 53 Year
  Sex: Female
  Weight: 72.56 kg

DRUGS (1)
  1. LYRICA [Suspect]
     Active Substance: PREGABALIN
     Dosage: 300 MG, UNK
     Dates: start: 2006

REACTIONS (6)
  - Pain [Unknown]
  - Paraesthesia [Not Recovered/Not Resolved]
  - Product complaint [Unknown]
  - Therapeutic product effect variable [Unknown]
  - Abnormal behaviour [Unknown]
  - Hypoaesthesia [Not Recovered/Not Resolved]
